FAERS Safety Report 15954529 (Version 1)
Quarter: 2019Q1

REPORT INFORMATION
  Report Type: Spontaneous
  Country: CA (occurrence: CA)
  Receive Date: 20190213
  Receipt Date: 20190213
  Transmission Date: 20190417
  Serious: Yes (Other)
  Sender: FDA-Public Use
  Company Number: CA-009507513-1902CAN003048

PATIENT
  Age: 85 Year
  Sex: Male

DRUGS (1)
  1. EZETROL [Suspect]
     Active Substance: EZETIMIBE
     Indication: HYPERCHOLESTEROLAEMIA
     Dosage: 10.0 MILLIGRAM, QD
     Route: 048

REACTIONS (2)
  - Peripheral swelling [Recovered/Resolved]
  - Weight increased [Recovered/Resolved]
